FAERS Safety Report 18648108 (Version 1)
Quarter: 2020Q4

REPORT INFORMATION
  Report Type: Other
  Country: US (occurrence: US)
  Receive Date: 20201222
  Receipt Date: 20201222
  Transmission Date: 20210114
  Serious: Yes (Other)
  Sender: FDA-Public Use
  Company Number: US-ROCHE-2659886

PATIENT
  Sex: Female

DRUGS (4)
  1. ESBRIET [Suspect]
     Active Substance: PIRFENIDONE
     Indication: IDIOPATHIC PULMONARY FIBROSIS
  2. ESBRIET [Suspect]
     Active Substance: PIRFENIDONE
     Indication: INTERSTITIAL LUNG DISEASE
     Route: 048
  3. ESBRIET [Suspect]
     Active Substance: PIRFENIDONE
     Indication: INTERSTITIAL LUNG DISEASE
     Dosage: TAKE 3 TABLET(S) BY MOUTH 3 TIMES A DAY WITH BREAK WITH BREAKFAST, LUNCH AND DINNER
     Route: 048
  4. ESBRIET [Suspect]
     Active Substance: PIRFENIDONE
     Indication: IDIOPATHIC PULMONARY FIBROSIS

REACTIONS (8)
  - Fall [Unknown]
  - Foot fracture [Unknown]
  - Tremor [Unknown]
  - Haemorrhage [Unknown]
  - Dizziness [Unknown]
  - Blood pressure abnormal [Unknown]
  - Facial bones fracture [Unknown]
  - Injury [Unknown]
